FAERS Safety Report 6719620-4 (Version None)
Quarter: 2010Q2

REPORT INFORMATION
  Report Type: 
  Country: None (occurrence: None)
  Receive Date: 20100507
  Receipt Date: 20100428
  Transmission Date: 20101027
  Serious: Yes (Hospitalization)
  Sender: FDA-Public Use
  Company Number: 2010SP024667

PATIENT
  Age: 83 Year
  Sex: Female

DRUGS (5)
  1. REMERON [Suspect]
     Indication: DEPRESSION
     Dosage: 45 MG; QD; PO
     Route: 048
  2. LORAZEPAM [Suspect]
     Indication: DRUG USE FOR UNKNOWN INDICATION
     Dosage: 2.5 MG; QD; PO
     Route: 048
  3. DALMADORM [Concomitant]
  4. DAFALGAN [Concomitant]
  5. OXYCONTIN [Concomitant]

REACTIONS (4)
  - CEREBRAL DISORDER [None]
  - CONFUSIONAL STATE [None]
  - INAPPROPRIATE ANTIDIURETIC HORMONE SECRETION [None]
  - NEOPLASM MALIGNANT [None]
